FAERS Safety Report 6657260-6 (Version None)
Quarter: 2010Q1

REPORT INFORMATION
  Report Type: 
  Country: None (occurrence: None)
  Receive Date: 20100325
  Receipt Date: 20100318
  Transmission Date: 20100710
  Serious: Yes (Other)
  Sender: FDA-Public Use
  Company Number: 2010SP016720

PATIENT
  Age: 18 Year
  Sex: Female

DRUGS (4)
  1. SAPHRIS [Suspect]
     Indication: DRUG USE FOR UNKNOWN INDICATION
  2. LITHIUM (CON.) [Concomitant]
  3. PERPHENAZINE (CON.) [Concomitant]
  4. KLONOPIN (CON.) [Concomitant]

REACTIONS (2)
  - DIARRHOEA [None]
  - HAEMATEMESIS [None]
